FAERS Safety Report 7543935 (Version 7)
Quarter: 2012Q4

REPORT INFORMATION
  Report Type: Report from Study
  Country: BE (occurrence: BE)
  Receive Date: 20100817
  Receipt Date: 20121115
  Transmission Date: 20130627
  Serious: Yes (Death, Life-Threatening, Hospitalization, Disabling, Other)
  Sender: FDA-Public Use
  Company Number: BE-BRISTOL-MYERS SQUIBB COMPANY-15178957

PATIENT
  Age: 55 Year
  Sex: Male
  Weight: 58 kg

DRUGS (3)
  1. CETUXIMAB [Suspect]
     Indication: HEAD AND NECK CANCER
     Dosage: Strength:5mg/ml
1st infusion:16Jun10,recent:23Jun10
No of dose:2
     Route: 042
     Dates: start: 20100616, end: 20100623
  2. CISPLATIN FOR INJ [Suspect]
     Indication: HEAD AND NECK CANCER
     Dosage: recent infusion:16Jun10
No of dose:1
     Route: 042
     Dates: start: 20100616, end: 20100616
  3. 5-FLUOROURACIL [Suspect]
     Indication: HEAD AND NECK CANCER
     Dosage: Continuous inf from day 1 to 4 cycle
Recent inf:19Jun2010
No of dose:1
     Route: 042
     Dates: start: 20100616, end: 20100619

REACTIONS (3)
  - Gastrointestinal haemorrhage [Fatal]
  - Pancytopenia [Not Recovered/Not Resolved]
  - Febrile neutropenia [Not Recovered/Not Resolved]
